FAERS Safety Report 23329365 (Version 1)
Quarter: 2023Q4

REPORT INFORMATION
  Report Type: Spontaneous
  Country: FR (occurrence: FR)
  Receive Date: 20231222
  Receipt Date: 20231222
  Transmission Date: 20240110
  Serious: Yes (Life-Threatening, Hospitalization, Other)
  Sender: FDA-Public Use
  Company Number: None

PATIENT
  Age: 45 Year
  Sex: Male
  Weight: 130 kg

DRUGS (4)
  1. AZTREONAM [Suspect]
     Active Substance: AZTREONAM
     Indication: Postoperative wound infection
     Route: 042
     Dates: start: 20231124, end: 20231207
  2. LINEZOLID [Suspect]
     Active Substance: LINEZOLID
     Indication: Postoperative wound infection
     Route: 048
     Dates: start: 20231128, end: 20231207
  3. AVIBACTAM SODIUM\CEFTAZIDIME [Suspect]
     Active Substance: AVIBACTAM SODIUM\CEFTAZIDIME
     Indication: Postoperative wound infection
     Route: 042
     Dates: start: 20231124, end: 20231207
  4. FOSFOMYCIN [Concomitant]
     Active Substance: FOSFOMYCIN
     Indication: Postoperative wound infection
     Route: 042
     Dates: start: 20231128

REACTIONS (2)
  - Antibiotic level above therapeutic [Recovered/Resolved]
  - Generalised tonic-clonic seizure [Recovered/Resolved]

NARRATIVE: CASE EVENT DATE: 20231207
